FAERS Safety Report 7510506-4 (Version None)
Quarter: 2011Q2

REPORT INFORMATION
  Report Type: 
  Country: None (occurrence: None)
  Receive Date: 20110529
  Receipt Date: 20110520
  Transmission Date: 20111010
  Serious: Yes (Other)
  Sender: FDA-Public Use
  Company Number: DE-BRISTOL-MYERS SQUIBB COMPANY-15445638

PATIENT
  Age: 54 Year
  Sex: Male
  Weight: 83 kg

DRUGS (3)
  1. CISPLATIN [Suspect]
     Indication: NON-SMALL CELL LUNG CANCER
     Dosage: RECENT INF ON 19NOV2010 (3RD INF).
     Route: 042
     Dates: start: 20101008
  2. VINORELBINE [Suspect]
     Indication: NON-SMALL CELL LUNG CANCER
     Dosage: DAY 1 AND DAY 8 OF EACH 3WK CYCLE; RECENT INF ON 26NOV2010 (6TH INF).
     Route: 042
     Dates: start: 20101008
  3. CETUXIMAB [Suspect]
     Indication: NON-SMALL CELL LUNG CANCER
     Dosage: RECENT INF ON 26NOV2010 (8TH INF); 5MG/ML.
     Route: 042
     Dates: start: 20101008

REACTIONS (1)
  - NAIL BED INFECTION [None]
